FAERS Safety Report 4356150-1 (Version None)
Quarter: 2004Q2

REPORT INFORMATION
  Report Type: 
  Country: None (occurrence: None)
  Receive Date: 20040506
  Receipt Date: 20040427
  Transmission Date: 20050107
  Serious: Yes (Other)
  Sender: FDA-Public Use
  Company Number: 2004209467JP

PATIENT
  Age: 49 Year
  Sex: Female
  Weight: 42 kg

DRUGS (3)
  1. NASANYL(NAFERELIN ACETATE)SPRAY [Suspect]
     Indication: ENDOMETRIOSIS
     Dosage: 800 UG, TWICE DAILY
     Dates: start: 20040402, end: 20040411
  2. FERROMIA (FERROUS CITRATE) [Concomitant]
  3. HYCOBAL [Concomitant]

REACTIONS (9)
  - ACCIDENTAL OVERDOSE [None]
  - ARTHRALGIA [None]
  - DEAFNESS UNILATERAL [None]
  - HOT FLUSH [None]
  - HYPERHIDROSIS [None]
  - MEDICATION ERROR [None]
  - PALPITATIONS [None]
  - THIRST [None]
  - TINNITUS [None]
